FAERS Safety Report 9831879 (Version 2)
Quarter: 2014Q2

REPORT INFORMATION
  Report Type: Spontaneous
  Country: US (occurrence: US)
  Receive Date: 20140121
  Receipt Date: 20140418
  Transmission Date: 20141212
  Serious: No
  Sender: FDA-Public Use
  Company Number: US-PFIZER INC-2014016928

PATIENT
  Age: 49 Year
  Sex: Female
  Weight: 104 kg

DRUGS (2)
  1. ADVIL [Suspect]
     Indication: MYALGIA
     Dosage: UNK
     Route: 048
     Dates: end: 201401
  2. TRAMADOL HYDROCHLORIDE [Suspect]
     Indication: MYALGIA
     Dosage: UNK

REACTIONS (1)
  - Drug ineffective [Unknown]
